FAERS Safety Report 9232026 (Version 1)
Quarter: 2013Q2

REPORT INFORMATION
  Report Type: Spontaneous
  Country: US (occurrence: US)
  Receive Date: 20130415
  Receipt Date: 20130415
  Transmission Date: 20140414
  Serious: No
  Sender: FDA-Public Use
  Company Number: US-PFIZER INC-2013113829

PATIENT
  Age: 48 Year
  Sex: Female
  Weight: 77.1 kg

DRUGS (2)
  1. PREMPRO [Suspect]
     Indication: OSTEOPOROSIS POSTMENOPAUSAL
     Dosage: 1 DF (0.625MG/ 2.5MG), 1X/DAY
     Route: 048
     Dates: start: 201207, end: 20130404
  2. PREMPRO [Suspect]
     Dosage: 1 DF (0.625MG/ 2.5MG), ALTERNATE DAY
     Route: 048
     Dates: start: 20130405, end: 201304

REACTIONS (4)
  - Drug ineffective [Unknown]
  - Weight increased [Not Recovered/Not Resolved]
  - Fatigue [Recovered/Resolved]
  - Impaired driving ability [Recovered/Resolved]
